FAERS Safety Report 24944184 (Version 1)
Quarter: 2025Q1

REPORT INFORMATION
  Report Type: Spontaneous
  Country: FR (occurrence: FR)
  Receive Date: 20250207
  Receipt Date: 20250207
  Transmission Date: 20250409
  Serious: Yes (Hospitalization, Other)
  Sender: NOVARTIS
  Company Number: None

PATIENT
  Age: 9 Year
  Sex: Male
  Weight: 44 kg

DRUGS (2)
  1. TEGRETOL [Suspect]
     Active Substance: CARBAMAZEPINE
     Indication: Epilepsy
     Dosage: 400 MG, QD, DU 15/AU 22/11 100MG 2X/JOUR PUISDU 23/ AU 29/11 200MG 2X/JOUR
     Route: 048
     Dates: start: 20241123, end: 20241129
  2. TEGRETOL [Suspect]
     Active Substance: CARBAMAZEPINE
     Dosage: 200 MG, QD, DU 15/AU 22/11 100MG 2X/JOUR PUISDU 23/ AU 29/11 200MG 2X/JOUR
     Route: 048
     Dates: start: 20241115, end: 20241122

REACTIONS (2)
  - Purpura [Not Recovered/Not Resolved]
  - Thrombocytopenic purpura [Recovered/Resolved]

NARRATIVE: CASE EVENT DATE: 20241127
